FAERS Safety Report 7278757-4 (Version None)
Quarter: 2011Q1

REPORT INFORMATION
  Report Type: 
  Country: None (occurrence: None)
  Receive Date: 20110207
  Receipt Date: 20110202
  Transmission Date: 20110831
  Serious: Yes (Death)
  Sender: FDA-Public Use
  Company Number: US-AMGEN-USASP2011006646

PATIENT
  Age: 60 Year
  Sex: Male
  Weight: 92.336 kg

DRUGS (1)
  1. NPLATE [Suspect]
     Indication: IDIOPATHIC THROMBOCYTOPENIC PURPURA
     Dosage: 90 A?G, UNK
     Dates: start: 20081208, end: 20100118

REACTIONS (1)
  - DEATH [None]
